FAERS Safety Report 8620283-1 (Version None)
Quarter: 2012Q3

REPORT INFORMATION
  Report Type: 
  Country: None (occurrence: None)
  Receive Date: 20120824
  Receipt Date: 20120813
  Transmission Date: 20120928
  Serious: Yes (Hospitalization, Other)
  Sender: FDA-Public Use
  Company Number: JP-VERTEX PHARMACEUTICAL INC.-AE-2012-011910

PATIENT
  Age: 68 Year
  Sex: Female

DRUGS (7)
  1. RESPLEN [Concomitant]
     Dosage: 60 MG, QD
     Route: 048
     Dates: start: 20120711, end: 20120813
  2. MUCODYNE [Concomitant]
     Dosage: 1500 MG, QD
     Route: 048
     Dates: start: 20120711, end: 20120813
  3. PEGINTERFERON ALFA-2B [Concomitant]
     Indication: HEPATITIS C
     Dosage: 1.6 A?G/KG, UNK
     Route: 058
     Dates: start: 20120605
  4. PEGINTERFERON ALFA-2B [Concomitant]
     Dosage: 1.0 A?G/KG, UNK
     Route: 058
     Dates: start: 20120704, end: 20120813
  5. RIBAVIRIN [Concomitant]
     Dosage: 200 MG, QD
     Route: 048
     Dates: start: 20120704, end: 20120813
  6. VX-950 [Suspect]
     Indication: HEPATITIS C
     Dosage: 1500 MG, QD
     Route: 048
     Dates: start: 20120605, end: 20120813
  7. RIBAVIRIN [Concomitant]
     Indication: HEPATITIS C
     Dosage: 400 MG, QD
     Route: 048
     Dates: start: 20120605

REACTIONS (2)
  - ERYTHEMA MULTIFORME [None]
  - WHITE BLOOD CELL COUNT DECREASED [None]
